FAERS Safety Report 18959424 (Version 1)
Quarter: 2021Q1

REPORT INFORMATION
  Report Type: Spontaneous
  Country: US (occurrence: US)
  Receive Date: 20210302
  Receipt Date: 20210302
  Transmission Date: 20210420
  Serious: No
  Sender: FDA-Public Use
  Company Number: US-TEVA-2021-US-1884871

PATIENT
  Sex: Female

DRUGS (14)
  1. MOMETASONE FUROATE. [Concomitant]
     Active Substance: MOMETASONE FUROATE
  2. VITAMIN D [Concomitant]
     Active Substance: VITAMIN D NOS
  3. MODAFINIL. [Concomitant]
     Active Substance: MODAFINIL
  4. ALBUTEROL INHALER [Concomitant]
     Active Substance: ALBUTEROL
  5. PRE?NATAL VITAMIN [Concomitant]
  6. COLACE [Concomitant]
     Active Substance: DOCUSATE SODIUM
  7. PROBIOTIC [Concomitant]
     Active Substance: PROBIOTICS NOS
  8. JUNEL 1.5 ALEVE [Concomitant]
  9. BENADRYL [Concomitant]
     Active Substance: DIPHENHYDRAMINE HYDROCHLORIDE
  10. JUNEL FE 1/20 [Suspect]
     Active Substance: ETHINYL ESTRADIOL\NORETHINDRONE ACETATE
     Indication: MENORRHAGIA
  11. MUPIROCIN. [Concomitant]
     Active Substance: MUPIROCIN
  12. JUNEL FE 1/20 [Suspect]
     Active Substance: ETHINYL ESTRADIOL\NORETHINDRONE ACETATE
     Indication: MENSTRUATION IRREGULAR
     Route: 065
  13. ZYRTEC [Concomitant]
     Active Substance: CETIRIZINE HYDROCHLORIDE
  14. EPIPEN [Concomitant]
     Active Substance: EPINEPHRINE

REACTIONS (1)
  - Drug ineffective [Unknown]
